FAERS Safety Report 8915557 (Version 1)
Quarter: 2012Q4

REPORT INFORMATION
  Report Type: 
  Country: NO (occurrence: NO)
  Receive Date: 20121119
  Receipt Date: 20121119
  Transmission Date: 20130627
  Serious: Yes (Life-Threatening)
  Sender: FDA-Public Use
  Company Number: NO-TEVA-368954ISR

PATIENT
  Sex: Female

DRUGS (1)
  1. OXALIPLATIN [Suspect]
     Indication: ADJUVANT THERAPY
     Dosage: Courses of 3-4 hours IV drip
     Route: 041

REACTIONS (2)
  - Anaphylactic reaction [Recovered/Resolved]
  - Confusional state [Recovered/Resolved]
